FAERS Safety Report 4569640-3 (Version None)
Quarter: 2005Q1

REPORT INFORMATION
  Report Type: 
  Country: None (occurrence: None)
  Receive Date: 20050201
  Receipt Date: 20050126
  Transmission Date: 20050727
  Serious: Yes (Other)
  Sender: FDA-Public Use
  Company Number: GBWYE082101OCT04

PATIENT
  Age: 80 Year
  Sex: Male

DRUGS (10)
  1. EFFEXOR [Suspect]
     Indication: DEPRESSION
     Dosage: 75 MG 1X PER 1 DAY ORAL
     Route: 048
     Dates: start: 20030328
  2. RAMIPRIL [Concomitant]
  3. CLOBETASONE (CLOBETASONE) [Concomitant]
  4. CO-PROXAMOL (DEXTROPROPOXYPHENE HYDROCHLORIDE/ PARACETAMOL) [Concomitant]
  5. DICLOFENAC SODIUM [Concomitant]
  6. ACETAMINOPHEN [Concomitant]
  7. ALLOPURINOL [Concomitant]
  8. BALNEUM PLUS (LAUROMACROGOL 400/SOYA OIL) [Concomitant]
  9. CALMURID (BETAINE/ LACTIC ACID/ UREA) [Concomitant]
  10. CLOTRIMAZOLE [Concomitant]

REACTIONS (3)
  - ARTHROPATHY [None]
  - MUSCLE ATROPHY [None]
  - MUSCULAR WEAKNESS [None]
